FAERS Safety Report 8317587-9 (Version None)
Quarter: 2012Q2

REPORT INFORMATION
  Report Type: 
  Country: None (occurrence: None)
  Receive Date: 20120427
  Receipt Date: 20120224
  Transmission Date: 20120825
  Serious: No
  Sender: FDA-Public Use
  Company Number: US-GLAXOSMITHKLINE-A0968287A

PATIENT
  Age: 34 Year
  Sex: Female

DRUGS (2)
  1. ZOFRAN [Suspect]
     Indication: NAUSEA
     Route: 065
     Dates: start: 20110101
  2. PHENERGAN HCL [Suspect]
     Indication: NAUSEA
     Route: 065
     Dates: start: 20110101

REACTIONS (1)
  - DRUG INEFFECTIVE [None]
